FAERS Safety Report 13617189 (Version 3)
Quarter: 2022Q1

REPORT INFORMATION
  Report Type: Spontaneous
  Country: US (occurrence: US)
  Receive Date: 20170606
  Receipt Date: 20220109
  Transmission Date: 20220423
  Serious: Yes (Other)
  Sender: FDA-Public Use
  Company Number: US-SA-2017SA059074

PATIENT
  Age: 80 Year
  Sex: Female

DRUGS (5)
  1. LANTUS SOLOSTAR [Suspect]
     Active Substance: INSULIN GLARGINE
     Indication: Type 2 diabetes mellitus
     Dosage: 12 DF,QD
     Route: 051
  2. LANTUS SOLOSTAR [Suspect]
     Active Substance: INSULIN GLARGINE
     Dosage: 12 DF,QD
     Route: 051
  3. SOLOSTAR [Concomitant]
     Active Substance: DEVICE
     Indication: Type 2 diabetes mellitus
  4. BYETTA [Concomitant]
     Active Substance: EXENATIDE
  5. BYETTA [Suspect]
     Active Substance: EXENATIDE

REACTIONS (4)
  - Blood glucose decreased [Unknown]
  - Visual impairment [Unknown]
  - Device issue [Unknown]
  - Product dose omission issue [Unknown]

NARRATIVE: CASE EVENT DATE: 20170301
